FAERS Safety Report 8326865-9 (Version None)
Quarter: 2012Q2

REPORT INFORMATION
  Report Type: 
  Country: None (occurrence: None)
  Receive Date: 20120501
  Receipt Date: 20110818
  Transmission Date: 20120825
  Serious: No
  Sender: FDA-Public Use
  Company Number: US-SANOFI-AVENTIS-2011SA056983

PATIENT
  Sex: Female

DRUGS (5)
  1. METFORMIN HCL [Concomitant]
  2. GLYBURIDE [Concomitant]
  3. APIDRA [Suspect]
     Indication: TYPE 1 DIABETES MELLITUS
     Dosage: DOSE:10 UNIT(S)
     Route: 058
     Dates: start: 20110101
  4. SOLOSTAR [Suspect]
     Indication: TYPE 1 DIABETES MELLITUS
     Dates: start: 20110101
  5. CORTICOSTEROIDS [Concomitant]

REACTIONS (2)
  - RASH [None]
  - PAIN [None]
